FAERS Safety Report 14194553 (Version 1)
Quarter: 2017Q4

REPORT INFORMATION
  Report Type: Spontaneous
  Country: US (occurrence: None)
  Receive Date: 20171115
  Receipt Date: 20171115
  Transmission Date: 20180321
  Serious: No
  Sender: FDA-Public Use
  Company Number: None

PATIENT
  Age: 39 Year
  Sex: Female

DRUGS (1)
  1. HUMIRA [Suspect]
     Active Substance: ADALIMUMAB
     Indication: CROHN^S DISEASE
     Dosage: DOSE AMOUNT - INJ 4 PENS ON DAY 1, 2 PENS ON DAY?FREQUENCY - DAY 1 AND DAY 15
     Route: 058
     Dates: start: 20171024

REACTIONS (2)
  - Headache [None]
  - Lacrimation increased [None]

NARRATIVE: CASE EVENT DATE: 20171024
